FAERS Safety Report 4875479-1 (Version None)
Quarter: 2006Q1

REPORT INFORMATION
  Report Type: 
  Country: None (occurrence: None)
  Receive Date: 20060105
  Receipt Date: 20051221
  Transmission Date: 20060701
  Serious: Yes (Hospitalization)
  Sender: FDA-Public Use
  Company Number: 2005BI022473

PATIENT
  Age: 56 Year
  Sex: Female
  Weight: 113.3993 kg

DRUGS (19)
  1. AVONEX [Suspect]
     Indication: MULTIPLE SCLEROSIS
     Dosage: 30 UG; QW; IM
     Route: 030
     Dates: start: 20030301, end: 20040101
  2. AVONEX [Suspect]
     Indication: MULTIPLE SCLEROSIS
     Dosage: 30 UG; QW; IM
     Route: 030
     Dates: start: 20040101
  3. NEURONTIN [Concomitant]
  4. BACLOFEN [Concomitant]
  5. PAXIL [Concomitant]
  6. LORATADINE [Concomitant]
  7. FLONASE [Concomitant]
  8. RESTASIS [Concomitant]
  9. PATANOL [Concomitant]
  10. REFRESH CELLUVIST LUBRICANT EYE DROPS [Concomitant]
  11. DOXYCYCLINE [Concomitant]
  12. METROGEL [Concomitant]
  13. CLINDAMYCIN GEL [Concomitant]
  14. AZELEX [Concomitant]
  15. VITAMINS [Concomitant]
  16. MINERAL TAB [Concomitant]
  17. CALCIUM WITH VITAMIN D [Concomitant]
  18. GLUCOSAMINE [Concomitant]
  19. CHONDRITON [Concomitant]

REACTIONS (6)
  - BLOOD CHOLESTEROL INCREASED [None]
  - BLOOD POTASSIUM DECREASED [None]
  - CARPAL TUNNEL SYNDROME [None]
  - FATIGUE [None]
  - HYPERTENSION [None]
  - MONARTHRITIS [None]
